FAERS Safety Report 20855773 (Version 2)
Quarter: 2022Q2

REPORT INFORMATION
  Report Type: Report from Study
  Country: AR (occurrence: AR)
  Receive Date: 20220520
  Receipt Date: 20220530
  Transmission Date: 20220720
  Serious: Yes (Hospitalization)
  Sender: FDA-Public Use
  Company Number: AR-BRISTOL-MYERS SQUIBB COMPANY-2022-041823

PATIENT
  Age: 66 Year
  Sex: Female
  Weight: 62 kg

DRUGS (15)
  1. NIVOLUMAB [Suspect]
     Active Substance: NIVOLUMAB
     Indication: Non-small cell lung cancer
     Dosage: MOST RECENT DOSE WAS RECEVIED ON 26-APR-2022
     Route: 042
     Dates: start: 20211130
  2. CISPLATIN [Suspect]
     Active Substance: CISPLATIN
     Indication: Non-small cell lung cancer
     Dosage: ON 18-MAR-2022 RECEVIED AT A DOSE OF 118 MG
     Route: 065
     Dates: start: 20211130
  3. PEMETREXED DISODIUM [Suspect]
     Active Substance: PEMETREXED DISODIUM
     Indication: Non-small cell lung cancer
     Dosage: MOST RECEVIED DOSE RECEVIED ON 05-APR-2022
     Route: 065
     Dates: start: 20211130
  4. ENOXAPARIN [Concomitant]
     Active Substance: ENOXAPARIN
     Indication: Product used for unknown indication
     Dosage: DAILY; PER DAY
     Route: 058
     Dates: start: 20220102
  5. ASPIRIN [Concomitant]
     Active Substance: ASPIRIN
     Indication: Product used for unknown indication
     Dosage: DAILY; PER DAY
     Route: 055
     Dates: start: 20211222
  6. TRAMADOL [Concomitant]
     Active Substance: TRAMADOL
     Indication: Product used for unknown indication
     Dosage: EVERY 8 HOURS
     Route: 048
     Dates: start: 2021
  7. FOLIC ACID [Concomitant]
     Active Substance: FOLIC ACID
     Indication: Product used for unknown indication
     Dosage: DAILY; PER DAY
     Route: 048
     Dates: start: 20211120
  8. BUDESONIDE [Concomitant]
     Active Substance: BUDESONIDE
     Indication: Product used for unknown indication
     Dosage: 1 DF=80 UNIT NOS, EVERY 8 HOURS
     Route: 055
     Dates: start: 20220309
  9. FORMOTEROL [Concomitant]
     Active Substance: FORMOTEROL
     Indication: Product used for unknown indication
     Dosage: 1 DF=4.5 UNIT NOS, EVERY 8 HOURS
     Route: 055
     Dates: start: 20220309
  10. METFORMIN HYDROCHLORIDE [Concomitant]
     Active Substance: METFORMIN HYDROCHLORIDE
     Indication: Product used for unknown indication
     Dosage: ONGOING
     Route: 048
     Dates: start: 2015
  11. VITAMIN B1 B6 B12 [Concomitant]
     Indication: Product used for unknown indication
     Dosage: 1 DF= 1 UNIT NOS EVERY MONTH; PER MONTH?ONGOING
     Route: 030
     Dates: start: 20211120
  12. ONDANSETRON [Concomitant]
     Active Substance: ONDANSETRON
     Indication: Product used for unknown indication
     Dosage: ONGOING
     Route: 048
     Dates: start: 20220319
  13. RELIVERAN [Concomitant]
     Indication: Product used for unknown indication
     Dosage: ONGOING
     Route: 048
     Dates: start: 20220410
  14. INSULIN ISOFANA [Concomitant]
     Indication: Product used for unknown indication
     Dosage: 1 DF= 30 UNIT NOS DAILY; PER DAY?ONGOING
     Route: 058
     Dates: start: 2021
  15. INSULIN ISOFANA [Concomitant]
     Dosage: 1 DF= 20 UNIT NOS DAILY; PER DAY?ONGOING
     Route: 058
     Dates: start: 2021

REACTIONS (1)
  - Vomiting [Recovered/Resolved]

NARRATIVE: CASE EVENT DATE: 20220512
